FAERS Safety Report 8833011 (Version 1)
Quarter: 2012Q4

REPORT INFORMATION
  Report Type: 
  Country: NL (occurrence: NL)
  Receive Date: 20121010
  Receipt Date: 20121010
  Transmission Date: 20130627
  Serious: Yes (Hospitalization)
  Sender: FDA-Public Use
  Company Number: NL-ACTELION-A-CH2012-72404

PATIENT
  Age: 53 Year
  Sex: Female
  Weight: 65 kg

DRUGS (3)
  1. TRACLEER [Suspect]
     Indication: PULMONARY ARTERIAL HYPERTENSION
     Dosage: 62.5 mg, bid
     Route: 048
     Dates: start: 20120524
  2. TRACLEER [Suspect]
     Dosage: 125 mg, bid
     Route: 048
     Dates: start: 20120624, end: 20121002
  3. METOPROLOL [Concomitant]

REACTIONS (1)
  - Atrial septal defect repair [Recovered/Resolved]
